FAERS Safety Report 5682311-5 (Version None)
Quarter: 2008Q1

REPORT INFORMATION
  Report Type: 
  Country: None (occurrence: None)
  Receive Date: 20080327
  Receipt Date: 20080319
  Transmission Date: 20080703
  Serious: Yes (Other)
  Sender: FDA-Public Use
  Company Number: PHHY2008BR03520

PATIENT
  Age: 28 Year
  Sex: Female

DRUGS (3)
  1. AMLODIPINE BESYLATE [Concomitant]
     Dosage: 5 MG, UNK
  2. INDAPAMIDE [Concomitant]
     Dosage: 1.5 MG, UNK
  3. RASILEZ [Suspect]
     Dosage: 150 MG, UNK
     Dates: start: 20080218

REACTIONS (2)
  - BLOOD CREATININE INCREASED [None]
  - RENAL FAILURE [None]
